FAERS Safety Report 17758075 (Version 2)
Quarter: 2020Q2

REPORT INFORMATION
  Report Type: Spontaneous
  Country: JP (occurrence: JP)
  Receive Date: 20200507
  Receipt Date: 20200618
  Transmission Date: 20200714
  Serious: Yes (Hospitalization, Other)
  Sender: FDA-Public Use
  Company Number: JP-ELI_LILLY_AND_COMPANY-JP202004010251

PATIENT
  Age: 77 Year
  Sex: Male
  Weight: 73.4 kg

DRUGS (9)
  1. LEUCOVORIN CA [Concomitant]
     Active Substance: LEUCOVORIN CALCIUM
     Indication: RECTOSIGMOID CANCER RECURRENT
     Dosage: UNK
     Dates: start: 20200318, end: 20200318
  2. AMLODIPINE [Concomitant]
     Active Substance: AMLODIPINE BESYLATE
     Route: 048
  3. FLUOROURACIL. [Concomitant]
     Active Substance: FLUOROURACIL
     Indication: RECTOSIGMOID CANCER RECURRENT
     Dosage: UNK
     Dates: start: 20200318, end: 20200320
  4. ALOXI [Concomitant]
     Active Substance: PALONOSETRON HYDROCHLORIDE
     Dosage: UNK
     Dates: start: 20200318, end: 20200318
  5. RABEPRAZOLE NA [Concomitant]
     Active Substance: RABEPRAZOLE SODIUM
     Route: 048
  6. CYRAMZA [Suspect]
     Active Substance: RAMUCIRUMAB
     Indication: RECTOSIGMOID CANCER RECURRENT
     Dosage: 480 MG
     Route: 041
     Dates: start: 20200318, end: 20200318
  7. CELECOX [Concomitant]
     Active Substance: CELECOXIB
     Route: 048
  8. CAMPTO [Concomitant]
     Active Substance: IRINOTECAN
     Indication: RECTOSIGMOID CANCER RECURRENT
     Dosage: UNK
     Dates: start: 20200318, end: 20200318
  9. DEXART [Concomitant]
     Active Substance: DEXAMETHASONE SODIUM PHOSPHATE
     Dosage: UNK
     Dates: start: 20200318, end: 20200318

REACTIONS (2)
  - Renal failure [Not Recovered/Not Resolved]
  - Neutrophil count decreased [Recovered/Resolved]

NARRATIVE: CASE EVENT DATE: 20200401
